FAERS Safety Report 6975977-0 (Version None)
Quarter: 2010Q3

REPORT INFORMATION
  Report Type: 
  Country: None (occurrence: None)
  Receive Date: 20100910
  Receipt Date: 20100902
  Transmission Date: 20110219
  Serious: Yes (Death, Hospitalization)
  Sender: FDA-Public Use
  Company Number: DE-BAXTER-2010BH009114

PATIENT
  Age: 49 Year
  Sex: Male
  Weight: 53 kg

DRUGS (19)
  1. HOLOXAN BAXTER [Suspect]
     Indication: B-CELL LYMPHOMA REFRACTORY
     Route: 042
     Dates: start: 20100327, end: 20100327
  2. CARBOPLATIN [Suspect]
     Indication: CHEMOTHERAPY
     Route: 042
     Dates: start: 20100327, end: 20100327
  3. ETOPOSIDE [Suspect]
     Indication: CHEMOTHERAPY
     Route: 042
     Dates: start: 20100327, end: 20100328
  4. RITUXIMAB [Suspect]
     Indication: LYMPHOMA
     Route: 042
     Dates: start: 20100326, end: 20100326
  5. NEPHROTRANS [Concomitant]
     Indication: PROPHYLAXIS
     Route: 048
     Dates: start: 20100326, end: 20100326
  6. PANTOPRAZOLE SODIUM [Concomitant]
     Indication: PROPHYLAXIS
     Route: 065
     Dates: start: 20100325, end: 20100325
  7. MAALOX                                  /NET/ [Concomitant]
     Indication: DYSPEPSIA
     Route: 048
     Dates: start: 20100325, end: 20100329
  8. NULYTELY [Concomitant]
     Indication: CONSTIPATION
     Route: 048
     Dates: start: 20100325, end: 20100329
  9. PASPERTIN [Concomitant]
     Indication: NAUSEA
     Route: 048
     Dates: start: 20100325, end: 20100329
  10. TRAMAL [Concomitant]
     Indication: ABDOMINAL PAIN
     Route: 048
     Dates: start: 20100325, end: 20100329
  11. LAXOBERAL ^BOEHRINGER INGELHEIM^ [Concomitant]
     Indication: CONSTIPATION
     Route: 048
     Dates: start: 20100325, end: 20100329
  12. RESONIUM CALCIUM [Concomitant]
     Indication: HYPERKALAEMIA
     Route: 048
     Dates: start: 20100327, end: 20100329
  13. NUTRIFLEX LIPID [Concomitant]
     Indication: MEDICAL DIET
     Route: 042
     Dates: start: 20100327, end: 20100329
  14. TRANSITRANS [Concomitant]
     Indication: MEDICAL DIET
     Route: 042
     Dates: start: 20100327, end: 20100329
  15. LASIX [Concomitant]
     Indication: FLUID RETENTION
     Route: 042
     Dates: start: 20100327, end: 20100329
  16. HEPARIN [Concomitant]
     Indication: THROMBOSIS PROPHYLAXIS
     Route: 058
     Dates: start: 20100326, end: 20100329
  17. DEXAMETHASONE [Concomitant]
     Indication: PREMEDICATION
     Route: 048
     Dates: start: 20100326, end: 20100326
  18. ACETAMINOPHEN [Concomitant]
     Indication: PREMEDICATION
     Route: 048
     Dates: start: 20100326, end: 20100326
  19. CERNEVIT-12 [Concomitant]
     Indication: MEDICAL DIET
     Route: 042
     Dates: start: 20100327, end: 20100329

REACTIONS (8)
  - ASCITES [None]
  - BLOOD PRESSURE DECREASED [None]
  - COAGULOPATHY [None]
  - PLEURAL EFFUSION [None]
  - RENAL FAILURE [None]
  - SEPSIS [None]
  - SOPOR [None]
  - UNRESPONSIVE TO STIMULI [None]
